FAERS Safety Report 6328656-7 (Version None)
Quarter: 2009Q3

REPORT INFORMATION
  Report Type: 
  Country: None (occurrence: None)
  Receive Date: 20090826
  Receipt Date: 20090814
  Transmission Date: 20100115
  Serious: Yes (Death, Other)
  Sender: FDA-Public Use
  Company Number: US-JNJFOC-20090804851

PATIENT
  Age: 29 Year

DRUGS (1)
  1. INFLIXIMAB [Suspect]
     Indication: ACUTE GRAFT VERSUS HOST DISEASE
     Dosage: RECEIVED AT LEAST 4 DOSES
     Route: 042

REACTIONS (2)
  - DRUG INEFFECTIVE FOR UNAPPROVED INDICATION [None]
  - HAEMATOLOGICAL MALIGNANCY [None]
